FAERS Safety Report 9748806 (Version 1)
Quarter: 2013Q4

REPORT INFORMATION
  Report Type: Spontaneous
  Country: US (occurrence: US)
  Receive Date: 20131212
  Receipt Date: 20131212
  Transmission Date: 20140711
  Serious: No
  Sender: FDA-Public Use
  Company Number: US-INCYTE CORPORATION-2013IN001940

PATIENT
  Sex: Male

DRUGS (3)
  1. JAKAFI [Suspect]
     Indication: MYELOFIBROSIS
     Dosage: 10 MG, BID
     Route: 048
     Dates: start: 20120126
  2. ACETAMINOPHEN [Concomitant]
     Dosage: 500, MG CAPLET, UNKNOWN
  3. COUMADIN [Concomitant]
     Dosage: 10 MG, UNK

REACTIONS (1)
  - Gout [Unknown]
